FAERS Safety Report 8958423 (Version 1)
Quarter: 2012Q4

REPORT INFORMATION
  Report Type: 
  Country: US (occurrence: None)
  Receive Date: 20121205
  Receipt Date: 20121205
  Transmission Date: 20130627
  Serious: No
  Sender: FDA-Public Use
  Company Number: None

PATIENT
  Sex: Male

DRUGS (1)
  1. XTANDI [Suspect]
     Dosage: TAKE 4 CAPSULES (160MG) BY MOUTH EVERY DAY
     Route: 048

REACTIONS (1)
  - Restless legs syndrome [None]
